FAERS Safety Report 12648215 (Version 4)
Quarter: 2017Q1

REPORT INFORMATION
  Report Type: Spontaneous
  Country: IT (occurrence: IT)
  Receive Date: 20160812
  Receipt Date: 20170214
  Transmission Date: 20170428
  Serious: Yes (Hospitalization, Other)
  Sender: FDA-Public Use
  Company Number: IT-PFIZER INC-2016379519

PATIENT
  Age: 16 Year
  Sex: Female

DRUGS (1)
  1. SERTRALINE HCL [Suspect]
     Active Substance: SERTRALINE HYDROCHLORIDE
     Dosage: 2000 MG, SINGLE

REACTIONS (10)
  - Intentional overdose [Recovered/Resolved]
  - Poisoning [Recovered/Resolved]
  - Depressed mood [Recovering/Resolving]
  - Anxiety [Recovering/Resolving]
  - Suicide attempt [Recovered/Resolved]
  - Delusion of reference [Recovering/Resolving]
  - Insomnia [Unknown]
  - Abnormal behaviour [Unknown]
  - Serotonin syndrome [Recovered/Resolved]
  - Suicidal ideation [Recovering/Resolving]
